FAERS Safety Report 12148523 (Version 1)
Quarter: 2016Q1

REPORT INFORMATION
  Report Type: Spontaneous
  Country: GB (occurrence: GB)
  Receive Date: 20160304
  Receipt Date: 20160304
  Transmission Date: 20160526
  Serious: Yes (Life-Threatening)
  Sender: FDA-Public Use
  Company Number: GB-TEVA-639724ACC

PATIENT
  Age: 55 Year
  Sex: Female
  Weight: 38.5 kg

DRUGS (6)
  1. PARACETAMOL [Concomitant]
     Active Substance: ACETAMINOPHEN
  2. ADCAL-D3 [Concomitant]
     Active Substance: CALCIUM CARBONATE\CHOLECALCIFEROL
  3. PEPPERMINT OIL [Concomitant]
     Active Substance: PEPPERMINT OIL
  4. SANATOGEN [Concomitant]
  5. CITALOPRAM [Suspect]
     Active Substance: CITALOPRAM HYDROBROMIDE
     Indication: ANXIETY DISORDER
     Route: 048
     Dates: start: 20151208, end: 20151229
  6. FYBOGEL [Concomitant]
     Active Substance: PLANTAGO OVATA SEED

REACTIONS (1)
  - Hyperkalaemia [Recovered/Resolved]

NARRATIVE: CASE EVENT DATE: 20151210
